FAERS Safety Report 9050427 (Version 2)
Quarter: 2014Q1

REPORT INFORMATION
  Report Type: Spontaneous
  Country: US (occurrence: US)
  Receive Date: 20130205
  Receipt Date: 20140217
  Transmission Date: 20141002
  Serious: No
  Sender: FDA-Public Use
  Company Number: US-PFIZER INC-2013042291

PATIENT
  Age: 63 Year
  Sex: Male

DRUGS (14)
  1. SUTENT [Suspect]
     Indication: RENAL CELL CARCINOMA
     Dosage: 50 MG, UNK
     Dates: start: 20130131
  2. ASPIR-81 [Concomitant]
     Dosage: UNK
  3. CALTRATE 600+D [Concomitant]
     Dosage: UNK
  4. CENTRUM SILVER [Concomitant]
     Dosage: UNK
  5. FISH OIL [Concomitant]
     Dosage: UNK
  6. FUROSEMIDE [Concomitant]
     Dosage: UNK
  7. IRON [Concomitant]
     Dosage: UNK
  8. GLUCOTROL XL [Concomitant]
     Dosage: UNK
  9. LASIX [Concomitant]
     Dosage: UNK
  10. LIPITOR [Concomitant]
     Dosage: UNK
  11. LISINOPRIL [Concomitant]
     Dosage: UNK
  12. METFORMIN HCL [Concomitant]
     Dosage: UNK
  13. VITAMIN D3 [Concomitant]
     Dosage: UNK
  14. ZOMETA [Concomitant]
     Dosage: UNK

REACTIONS (3)
  - Palmar-plantar erythrodysaesthesia syndrome [Unknown]
  - Disease progression [Unknown]
  - Renal cell carcinoma [Unknown]
